FAERS Safety Report 8716298 (Version 2)
Quarter: 2012Q4

REPORT INFORMATION
  Report Type: 
  Country: US (occurrence: US)
  Receive Date: 20120810
  Receipt Date: 20121002
  Transmission Date: 20130627
  Serious: Yes (Hospitalization, Other)
  Sender: FDA-Public Use
  Company Number: US-009507513-2012SP023039

PATIENT
  Sex: Female
  Weight: 90.7 kg

DRUGS (2)
  1. NUVARING [Suspect]
     Indication: CONTRACEPTION
     Dosage: UNK
     Route: 067
     Dates: start: 2008, end: 2010
  2. PREDNISONE [Concomitant]
     Indication: AUTOIMMUNE DISORDER
     Dosage: 5 mg, qd
     Route: 048
     Dates: start: 2001

REACTIONS (12)
  - Abortion spontaneous [Recovered/Resolved]
  - Emotional disorder [Unknown]
  - Thrombosis [Unknown]
  - Pre-eclampsia [Unknown]
  - Unintended pregnancy [Unknown]
  - Convulsion [Unknown]
  - Subarachnoid haemorrhage [Unknown]
  - Superior sagittal sinus thrombosis [Unknown]
  - Vomiting [Unknown]
  - Nausea [Unknown]
  - Headache [Unknown]
  - Antiphospholipid syndrome [Unknown]
